FAERS Safety Report 9642793 (Version 2)
Quarter: 2014Q1

REPORT INFORMATION
  Report Type: Spontaneous
  Country: US (occurrence: US)
  Receive Date: 20131024
  Receipt Date: 20140128
  Transmission Date: 20141002
  Serious: No
  Sender: FDA-Public Use
  Company Number: US-009507513-1310USA010766

PATIENT
  Age: 4 Year
  Sex: Male

DRUGS (4)
  1. CLARITIN ORAL SOLUTION [Suspect]
     Indication: SNEEZING
     Dosage: UNK, UNKNOWN
     Route: 048
     Dates: start: 20131014
  2. CLARITIN ORAL SOLUTION [Suspect]
     Indication: RHINORRHOEA
  3. CLARITIN ORAL SOLUTION [Suspect]
     Indication: EYE PRURITUS
  4. CLARITIN ORAL SOLUTION [Suspect]
     Indication: LACRIMATION INCREASED

REACTIONS (1)
  - Drug ineffective [Unknown]
